FAERS Safety Report 9715942 (Version 3)
Quarter: 2014Q1

REPORT INFORMATION
  Report Type: Report from Study
  Country: BE (occurrence: BE)
  Receive Date: 20131127
  Receipt Date: 20140131
  Transmission Date: 20141002
  Serious: Yes (Death, Other)
  Sender: FDA-Public Use
  Company Number: BE-ROCHE-1264456

PATIENT
  Age: 47 Year
  Sex: Male
  Weight: 85 kg

DRUGS (2)
  1. AVASTIN [Suspect]
     Indication: GLIOBLASTOMA
     Dosage: VIALS OF 100 MG/4ML: 35 ?VIALS OF 400 MG/16ML: 66
     Route: 042
     Dates: start: 20111129, end: 20130418
  2. DEPAKINE [Concomitant]
     Route: 048

REACTIONS (3)
  - Disease progression [Fatal]
  - Proteinuria [Recovered/Resolved]
  - Proteinuria [Recovered/Resolved]
